FAERS Safety Report 7582350-3 (Version None)
Quarter: 2011Q2

REPORT INFORMATION
  Report Type: 
  Country: None (occurrence: None)
  Receive Date: 20110527
  Receipt Date: 20101025
  Transmission Date: 20111010
  Serious: Yes (Other)
  Sender: FDA-Public Use
  Company Number: US200910005427

PATIENT
  Age: 69 Year
  Sex: Female
  Weight: 67.6 kg

DRUGS (10)
  1. INSULIN (INSULIN) [Concomitant]
  2. LASIX [Concomitant]
  3. DIOVAN [Concomitant]
  4. PIOGLITAZONE [Concomitant]
  5. POTASSIUM (POTASSIUM) [Concomitant]
  6. LEVBID (HYOSCYAMINE SULFATE) [Concomitant]
  7. EXENATIDE PEN, DISPOSABLE DEVICE (EXENATIDE PEN ) PEN, DISPOSABLE [Concomitant]
  8. STATIN (TIABENDAZOLE) [Concomitant]
  9. BYETTA [Suspect]
     Dates: start: 20060828, end: 20070829
  10. NORVASC [Concomitant]

REACTIONS (2)
  - RENAL FAILURE [None]
  - OFF LABEL USE [None]
